FAERS Safety Report 24109790 (Version 1)
Quarter: 2024Q3

REPORT INFORMATION
  Report Type: Other
  Country: GR (occurrence: GR)
  Receive Date: 20240718
  Receipt Date: 20240718
  Transmission Date: 20241016
  Serious: Yes (Hospitalization, Other)
  Sender: EMD SERONO INC
  Company Number: GR-Merck Healthcare KGaA-2024037395

PATIENT
  Age: 71 Year
  Sex: Female

DRUGS (1)
  1. METFORMIN [Suspect]
     Active Substance: METFORMIN HYDROCHLORIDE
     Indication: Type 2 diabetes mellitus

REACTIONS (3)
  - Euglycaemic diabetic ketoacidosis [Unknown]
  - Acute kidney injury [Unknown]
  - Lactic acidosis [Recovering/Resolving]
